FAERS Safety Report 17597616 (Version 1)
Quarter: 2020Q1

REPORT INFORMATION
  Report Type: Spontaneous
  Country: US (occurrence: US)
  Receive Date: 20200326
  Receipt Date: 20200326
  Transmission Date: 20200409
  Serious: No
  Sender: FDA-Public Use
  Company Number: None

PATIENT
  Age: 22 Year
  Sex: Male

DRUGS (1)
  1. PULMOZYME [Suspect]
     Active Substance: DORNASE ALFA
     Dosage: ?          OTHER DOSE:2.5MG/2.5ML;OTHER FREQUENCY:OTHER;?
     Route: 055
     Dates: start: 201509

REACTIONS (1)
  - Somnolence [None]

NARRATIVE: CASE EVENT DATE: 20200116
